FAERS Safety Report 10050092 (Version 1)
Quarter: 2014Q2

REPORT INFORMATION
  Report Type: Spontaneous
  Country: US (occurrence: US)
  Receive Date: 20140401
  Receipt Date: 20140401
  Transmission Date: 20141212
  Serious: Yes (Hospitalization)
  Sender: FDA-Public Use
  Company Number: US-ASTRAZENECA-2014SE20489

PATIENT
  Age: 62 Year
  Sex: Female
  Weight: 88 kg

DRUGS (2)
  1. SEROQUEL [Suspect]
     Indication: DEPRESSION
     Route: 048
     Dates: start: 2014
  2. SEROQUEL [Suspect]
     Indication: HALLUCINATION
     Route: 048
     Dates: start: 2014

REACTIONS (1)
  - Psychotic behaviour [Not Recovered/Not Resolved]
